FAERS Safety Report 9698815 (Version 2)
Quarter: 2013Q4

REPORT INFORMATION
  Report Type: Report from Study
  Country: US (occurrence: US)
  Receive Date: 20131120
  Receipt Date: 20131121
  Transmission Date: 20140711
  Serious: Yes (Hospitalization, Other)
  Sender: FDA-Public Use
  Company Number: US-ROCHE-1304714

PATIENT
  Age: 58 Year
  Sex: Male
  Weight: 94.5 kg

DRUGS (6)
  1. ACTEMRA [Suspect]
     Indication: RHEUMATOID ARTHRITIS
     Route: 042
     Dates: start: 20131008, end: 20131101
  2. CYCLOBENZAPRINE [Concomitant]
     Route: 065
  3. CYMBALTA [Concomitant]
     Route: 065
  4. DOXYCYCLINE [Concomitant]
     Route: 065
  5. OXYCODONE [Concomitant]
     Route: 065
  6. IBUPROFEN [Concomitant]
     Route: 065

REACTIONS (1)
  - Acute myocardial infarction [Recovering/Resolving]
